FAERS Safety Report 13454116 (Version 1)
Quarter: 2017Q2

REPORT INFORMATION
  Report Type: Spontaneous
  Country: US (occurrence: US)
  Receive Date: 20170418
  Receipt Date: 20170418
  Transmission Date: 20170830
  Serious: No
  Sender: FDA-Public Use
  Company Number: US-ALLERGAN-1672437US

PATIENT
  Sex: Female

DRUGS (3)
  1. LATISSE [Suspect]
     Active Substance: BIMATOPROST
     Indication: GROWTH OF EYELASHES
     Dosage: UNK
     Route: 061
     Dates: start: 20161011, end: 20161016
  2. DESONIDE. [Concomitant]
     Active Substance: DESONIDE
     Indication: ECZEMA
  3. DESONIDE. [Concomitant]
     Active Substance: DESONIDE
     Indication: DERMATITIS

REACTIONS (2)
  - Hypersensitivity [Unknown]
  - Eyelid rash [Recovered/Resolved]
